FAERS Safety Report 8449329-0 (Version None)
Quarter: 2012Q2

REPORT INFORMATION
  Report Type: 
  Country: None (occurrence: None)
  Receive Date: 20120619
  Receipt Date: 20120618
  Transmission Date: 20120825
  Serious: Yes (Hospitalization)
  Sender: FDA-Public Use
  Company Number: US-PFIZER INC-2012146563

PATIENT
  Sex: Male
  Weight: 108.84 kg

DRUGS (2)
  1. ACCUPRIL [Suspect]
     Dosage: UNK
  2. LIPITOR [Suspect]
     Dosage: UNK
     Dates: start: 20100101

REACTIONS (1)
  - ANKLE OPERATION [None]
